FAERS Safety Report 7883967-9 (Version None)
Quarter: 2011Q4

REPORT INFORMATION
  Report Type: 
  Country: None (occurrence: None)
  Receive Date: 20111102
  Receipt Date: 20111019
  Transmission Date: 20120403
  Serious: Yes (Hospitalization)
  Sender: FDA-Public Use
  Company Number: PHHO2011AU10765

PATIENT
  Sex: Male
  Weight: 85.2 kg

DRUGS (5)
  1. DIOVAN [Suspect]
     Dosage: 160 MG
     Dates: start: 20101125
  2. NO TREATMENT RECEIVED [Suspect]
  3. EXFORGE [Suspect]
     Indication: HYPERTENSION
     Dosage: 160/ 5 MG, UNK
     Route: 048
     Dates: start: 20110106, end: 20110506
  4. DIABEX S.R. [Concomitant]
     Indication: DIABETES MELLITUS
  5. DIOVAN [Suspect]
     Dosage: 80 MG
     Dates: start: 20101029

REACTIONS (2)
  - RHINORRHOEA [None]
  - PALATAL OEDEMA [None]
